FAERS Safety Report 18521800 (Version 1)
Quarter: 2020Q4

REPORT INFORMATION
  Report Type: Spontaneous
  Country: GB (occurrence: GB)
  Receive Date: 20201119
  Receipt Date: 20201119
  Transmission Date: 20210114
  Serious: Yes (Other)
  Sender: FDA-Public Use
  Company Number: GB-TEVA-2020-GB-1848811

PATIENT
  Sex: Female

DRUGS (5)
  1. PREDNISOLONE. [Suspect]
     Active Substance: PREDNISOLONE
     Indication: GLOMERULONEPHRITIS MINIMAL LESION
     Dosage: HIGH-DOSE
     Route: 065
  2. RITUXIMAB. [Suspect]
     Active Substance: RITUXIMAB
     Dosage: DURING 2ND PREGNANCY
     Route: 065
  3. RITUXIMAB. [Suspect]
     Active Substance: RITUXIMAB
     Indication: GLOMERULONEPHRITIS MINIMAL LESION
     Route: 065
     Dates: start: 201602
  4. RITUXIMAB. [Suspect]
     Active Substance: RITUXIMAB
     Dosage: DURING 1ST PREGNANCY
     Route: 065
  5. MYCOPHENOLATE MOFETIL. [Suspect]
     Active Substance: MYCOPHENOLATE MOFETIL
     Indication: GLOMERULONEPHRITIS MINIMAL LESION
     Route: 065
     Dates: end: 201211

REACTIONS (5)
  - Short stature [Unknown]
  - Off label use [Unknown]
  - Abortion spontaneous [Unknown]
  - Osteopenia [Unknown]
  - Exposure during pregnancy [Unknown]
